FAERS Safety Report 10265248 (Version 5)
Quarter: 2015Q1

REPORT INFORMATION
  Report Type: Report from Study
  Country: JP (occurrence: JP)
  Receive Date: 20140627
  Receipt Date: 20150210
  Transmission Date: 20150720
  Serious: Yes (Hospitalization, Disabling)
  Sender: FDA-Public Use
  Company Number: JP-NOVOPROD-414229

PATIENT
  Age: 45 Year
  Sex: Male
  Weight: 85 kg

DRUGS (1)
  1. NORDITROPIN [Suspect]
     Active Substance: SOMATROPIN
     Indication: GROWTH HORMONE DEFICIENCY
     Dosage: 0.25 MG, QD
     Route: 065
     Dates: start: 20120413, end: 20120905

REACTIONS (2)
  - Neoplasm recurrence [Recovered/Resolved with Sequelae]
  - Pituitary tumour benign [Recovered/Resolved with Sequelae]

NARRATIVE: CASE EVENT DATE: 20120905
